FAERS Safety Report 24199215 (Version 1)
Quarter: 2024Q3

REPORT INFORMATION
  Report Type: Spontaneous
  Country: RU (occurrence: RU)
  Receive Date: 20240812
  Receipt Date: 20240812
  Transmission Date: 20241017
  Serious: Yes (Life-Threatening, Other)
  Sender: SERVIER
  Company Number: None

PATIENT

DRUGS (5)
  1. ONCASPAR [Suspect]
     Active Substance: PEGASPARGASE
     Indication: Acute lymphocytic leukaemia
     Dosage: UNK
     Route: 042
     Dates: start: 20240525, end: 20240525
  2. ONCASPAR [Suspect]
     Active Substance: PEGASPARGASE
     Dosage: 1000 IU/M2
     Route: 042
     Dates: start: 20240716, end: 20240716
  3. ONCASPAR [Suspect]
     Active Substance: PEGASPARGASE
     Dosage: 1350 IU, ONE DOSE
     Route: 042
     Dates: start: 20240730, end: 20240730
  4. DEXAMETHASONE [Concomitant]
     Active Substance: DEXAMETHASONE
     Indication: Premedication
     Dosage: UNK
     Route: 065
  5. CHLOROPYRAMINE [Concomitant]
     Active Substance: CHLOROPYRAMINE
     Indication: Premedication
     Dosage: UNK
     Route: 065

REACTIONS (3)
  - Anaphylactic shock [Recovered/Resolved]
  - Angioedema [Recovered/Resolved]
  - Urticaria [Recovered/Resolved]

NARRATIVE: CASE EVENT DATE: 20240716
